FAERS Safety Report 10223750 (Version 2)
Quarter: 2014Q2

REPORT INFORMATION
  Report Type: Spontaneous
  Country: US (occurrence: US)
  Receive Date: 20140609
  Receipt Date: 20140624
  Transmission Date: 20141212
  Serious: No
  Sender: FDA-Public Use
  Company Number: US-TEVA-485820USA

PATIENT
  Age: 2 Decade
  Sex: Male

DRUGS (3)
  1. ACTIQ [Suspect]
     Indication: BREAKTHROUGH PAIN
     Dosage: Q 4-6 HOURS
     Dates: start: 2008
  2. METHADONE [Concomitant]
     Indication: PAIN
  3. OXYCODONE SUSTAINED RELEASE [Concomitant]
     Indication: PAIN

REACTIONS (2)
  - Drug effect decreased [Unknown]
  - Off label use [Unknown]
